FAERS Safety Report 19800822 (Version 1)
Quarter: 2021Q3

REPORT INFORMATION
  Report Type: Spontaneous
  Country: CZ (occurrence: CZ)
  Receive Date: 20210907
  Receipt Date: 20210907
  Transmission Date: 20211014
  Serious: Yes (Other)
  Sender: FDA-Public Use
  Company Number: CZ-BAUSCH-BL-2021-029469

PATIENT
  Age: 8 Decade
  Sex: Male

DRUGS (11)
  1. REVLIMID [Suspect]
     Active Substance: LENALIDOMIDE
     Route: 048
     Dates: end: 20200213
  2. REVLIMID [Suspect]
     Active Substance: LENALIDOMIDE
     Route: 048
     Dates: end: 20200528
  3. DEXAMETHASONE. [Suspect]
     Active Substance: DEXAMETHASONE
     Indication: GENERAL PHYSICAL HEALTH DETERIORATION
     Dosage: NO. OF CYCLES: 4
     Route: 065
     Dates: start: 20191209, end: 20200616
  4. BORTEZOMIB. [Suspect]
     Active Substance: BORTEZOMIB
     Dosage: 3RD LINE
     Route: 065
     Dates: start: 20200710, end: 20200721
  5. DEXAMETHASONE. [Suspect]
     Active Substance: DEXAMETHASONE
     Dosage: 2 ND LINE
     Route: 065
     Dates: start: 20200629, end: 20200709
  6. THALIDOMIDE [Suspect]
     Active Substance: THALIDOMIDE
     Dosage: 3RD LINE
     Route: 065
     Dates: start: 20200710, end: 20200721
  7. BORTEZOMIB. [Suspect]
     Active Substance: BORTEZOMIB
     Indication: PRODUCT USED FOR UNKNOWN INDICATION
     Dosage: 2 ND LINE
     Route: 065
     Dates: start: 20200629, end: 20200709
  8. DARATUMUMAB [Suspect]
     Active Substance: DARATUMUMAB
     Indication: PLASMA CELL MYELOMA
     Dosage: 3RD LINE
     Route: 065
     Dates: start: 20200710, end: 20200721
  9. REVLIMID [Suspect]
     Active Substance: LENALIDOMIDE
     Indication: PRODUCT USED FOR UNKNOWN INDICATION
     Dosage: 21 UNSPECIFIED DOSE
     Route: 048
     Dates: start: 20191209, end: 20200616
  10. DEXAMETHASONE. [Suspect]
     Active Substance: DEXAMETHASONE
     Dosage: 3 RD LINE
     Route: 065
     Dates: start: 20200710, end: 20200721
  11. THALIDOMIDE [Suspect]
     Active Substance: THALIDOMIDE
     Indication: PRODUCT USED FOR UNKNOWN INDICATION
     Dosage: 2 ND LINE
     Route: 065
     Dates: start: 20200629, end: 20200709

REACTIONS (6)
  - Disease progression [Unknown]
  - Therapy non-responder [Unknown]
  - Rash [Unknown]
  - COVID-19 [Unknown]
  - Neutropenia [Unknown]
  - General physical health deterioration [Unknown]

NARRATIVE: CASE EVENT DATE: 20200616
